FAERS Safety Report 6054402-0 (Version None)
Quarter: 2009Q1

REPORT INFORMATION
  Report Type: 
  Country: None (occurrence: None)
  Receive Date: 20090123
  Receipt Date: 20090123
  Transmission Date: 20090719
  Serious: No
  Sender: FDA-Public Use
  Company Number: None

PATIENT
  Sex: Female
  Weight: 59.55 kg

DRUGS (5)
  1. PAXIL [Suspect]
     Dosage: 20MG TABLET 40 MG QD ORAL
     Route: 048
     Dates: start: 20090122, end: 20090122
  2. BUPROPION HCL [Concomitant]
  3. LACTULOSE [Concomitant]
  4. RETIN-A [Concomitant]
  5. SUBOXONE [Concomitant]

REACTIONS (1)
  - SEXUAL DYSFUNCTION [None]
